FAERS Safety Report 15272945 (Version 2)
Quarter: 2021Q1

REPORT INFORMATION
  Report Type: Spontaneous
  Country: US (occurrence: US)
  Receive Date: 20180813
  Receipt Date: 20210128
  Transmission Date: 20210419
  Serious: Yes (Other)
  Sender: FDA-Public Use
  Company Number: US-PURDUE-USA-2018-0143279

PATIENT
  Age: 66 Year
  Sex: Female

DRUGS (5)
  1. BUTRANS [Suspect]
     Active Substance: BUPRENORPHINE
     Indication: PELVIC PAIN
  2. BUTRANS [Suspect]
     Active Substance: BUPRENORPHINE
     Indication: BACK PAIN
  3. HYDROCODONE BITARTRATE AND ACETAMINOPHEN [Suspect]
     Active Substance: ACETAMINOPHEN\HYDROCODONE BITARTRATE
     Indication: PRODUCT USED FOR UNKNOWN INDICATION
     Dosage: UNK
     Route: 048
  4. BUTRANS [Suspect]
     Active Substance: BUPRENORPHINE
     Indication: NECK PAIN
  5. BUTRANS [Suspect]
     Active Substance: BUPRENORPHINE
     Indication: ARTHRALGIA
     Dosage: 7.5 MCG/HR, WEEKLY
     Route: 062
     Dates: start: 20180326

REACTIONS (17)
  - Faeces discoloured [Unknown]
  - Drug withdrawal syndrome [Recovered/Resolved]
  - Pain of skin [Recovered/Resolved]
  - Intentional product use issue [Recovered/Resolved]
  - Paraesthesia oral [Recovered/Resolved]
  - Back pain [Recovered/Resolved]
  - Product adhesion issue [Unknown]
  - Illness [Unknown]
  - Unevaluable event [Unknown]
  - Feeling abnormal [Recovered/Resolved]
  - Headache [Recovered/Resolved]
  - Skin burning sensation [Recovered/Resolved]
  - Neck pain [Recovered/Resolved]
  - Drug dependence [Unknown]
  - Pain [Unknown]
  - Internal haemorrhage [Unknown]
  - Drug ineffective [Not Recovered/Not Resolved]

NARRATIVE: CASE EVENT DATE: 20180326
